FAERS Safety Report 5604617-8 (Version None)
Quarter: 2008Q1

REPORT INFORMATION
  Report Type: 
  Country: None (occurrence: None)
  Receive Date: 20080124
  Receipt Date: 20080124
  Transmission Date: 20080703
  Serious: No
  Sender: FDA-Public Use
  Company Number: None

PATIENT
  Age: 49 Year
  Sex: Female
  Weight: 77.1115 kg

DRUGS (1)
  1. VYTORIN [Suspect]
     Indication: BLOOD CHOLESTEROL
     Dosage: 10/20   1X PER DAY
     Dates: start: 20070904, end: 20080107

REACTIONS (3)
  - GRIP STRENGTH DECREASED [None]
  - MUSCULAR WEAKNESS [None]
  - MYALGIA [None]
